FAERS Safety Report 5701808-2 (Version None)
Quarter: 2008Q2

REPORT INFORMATION
  Report Type: 
  Country: None (occurrence: None)
  Receive Date: 20080410
  Receipt Date: 20080410
  Transmission Date: 20081010
  Serious: Yes (Hospitalization, Disabling, Other)
  Sender: FDA-Public Use
  Company Number: None

PATIENT
  Age: 16 Year
  Sex: Male
  Weight: 124.7392 kg

DRUGS (1)
  1. NEXIUM [Suspect]
     Dosage: ONCE DAILY 3 DAYS SEPT 2007 TWICE DAILY
     Dates: start: 20060501, end: 20070901

REACTIONS (7)
  - ATAXIA [None]
  - DIZZINESS [None]
  - INNER EAR DISORDER [None]
  - MALAISE [None]
  - MIGRAINE [None]
  - NAUSEA [None]
  - WEIGHT INCREASED [None]
